FAERS Safety Report 6908002-8 (Version None)
Quarter: 2010Q3

REPORT INFORMATION
  Report Type: 
  Country: None (occurrence: None)
  Receive Date: 20100712
  Receipt Date: 20100407
  Transmission Date: 20110219
  Serious: No
  Sender: FDA-Public Use
  Company Number: US-000095

PATIENT
  Age: 8 Year
  Sex: Female
  Weight: 31.4 kg

DRUGS (5)
  1. KUVAN [Suspect]
     Dosage: 400 MG QD ORAL, 500 MG QD, 600 MG QD
     Route: 048
     Dates: start: 20090401, end: 20090617
  2. KUVAN [Suspect]
     Dosage: 400 MG QD ORAL, 500 MG QD, 600 MG QD
     Route: 048
     Dates: start: 20090618, end: 20091201
  3. KUVAN [Suspect]
     Dosage: 400 MG QD ORAL, 500 MG QD, 600 MG QD
     Route: 048
     Dates: start: 20091201
  4. CONCERTA [Concomitant]
  5. PROTEIN SUPPLEMENTS [Concomitant]

REACTIONS (1)
  - HYPERTROPHY OF TONGUE PAPILLAE [None]
